FAERS Safety Report 8951314 (Version 2)
Quarter: 2012Q4

REPORT INFORMATION
  Report Type: 
  Country: CA (occurrence: CA)
  Receive Date: 20121207
  Receipt Date: 20121220
  Transmission Date: 20130627
  Serious: Yes (Death, Other)
  Sender: FDA-Public Use
  Company Number: PHHY2012CA109319

PATIENT
  Age: 47 Year
  Sex: Female

DRUGS (2)
  1. SANDOSTATIN [Suspect]
     Indication: PERITONEAL NEOPLASM
     Dosage: UNK UKN, TID for 2 weks
     Route: 058
     Dates: start: 20121107
  2. SANDOSTATIN [Suspect]
     Dosage: 20 mg once a month
     Route: 030
     Dates: start: 20121121

REACTIONS (3)
  - Death [Fatal]
  - Blood pressure decreased [Unknown]
  - Hypokinesia [Unknown]
